FAERS Safety Report 25750387 (Version 6)
Quarter: 2025Q4

REPORT INFORMATION
  Report Type: Spontaneous
  Country: EU (occurrence: EU)
  Receive Date: 20250902
  Receipt Date: 20251222
  Transmission Date: 20260118
  Serious: Yes (Hospitalization, Other)
  Sender: MYLAN
  Company Number: EU-GEN-2025-2515

PATIENT
  Age: 34 Year
  Sex: Male

DRUGS (15)
  1. SERTRALINE [Interacting]
     Active Substance: SERTRALINE HYDROCHLORIDE
     Indication: Abdominal pain
     Dosage: 100 MILLIGRAM, QD (1 X 100 MG)
  2. QUETIAPINE [Suspect]
     Active Substance: QUETIAPINE
     Indication: Abdominal pain
     Dosage: 25 MILLIGRAM, BID (50 MILLIGRAM, QD)
  3. ACETAMINOPHEN [Suspect]
     Active Substance: ACETAMINOPHEN
     Indication: Abdominal pain
     Dosage: 1 GRAM, TID (3 RAM, QD)
  4. CANNABIS SATIVA SUBSP. INDICA TOP [Interacting]
     Active Substance: CANNABIS SATIVA SUBSP. INDICA TOP
     Indication: Abdominal pain
     Dosage: 0.2 GRAM, QD (STARTING AT A DOSE OF 0.2 G/DAY OF VAPORIZED HERB)(THC 20%, CBD ? 0.5% (CANOPY GROWTH)
  5. KETOPROFEN [Concomitant]
     Active Substance: KETOPROFEN
     Indication: Thunderclap headache
     Dosage: 100 MILLIGRAM, QD (OF ORAL KETOPROFEN )
     Route: 061
  6. METAMIZOLE [Concomitant]
     Active Substance: METAMIZOLE
     Indication: Thunderclap headache
     Dosage: 1000 MILLIGRAM
  7. METAMIZOLE [Concomitant]
     Active Substance: METAMIZOLE
     Indication: Pain
     Dosage: 1000 MILLIGRAM (4 ? 1 G)
  8. FENTANYL [Concomitant]
     Active Substance: FENTANYL
     Indication: Breakthrough pain
     Dosage: UNK UNK, PRN (INTRANASAL FENTANYL IF NECESSARY)
  9. OXYCODONE [Concomitant]
     Active Substance: OXYCODONE
     Indication: Abdominal pain
     Dosage: 200 MILLIGRAM, QD (INCREASE IN THE OXYCODONE DOSE TO 2 X 100 MG)
     Route: 061
  10. OXYCODONE [Concomitant]
     Active Substance: OXYCODONE
     Dosage: 80 MILLIGRAM, BID (160 MG, QD)
     Route: 061
  11. OXYCODONE [Concomitant]
     Active Substance: OXYCODONE
     Dosage: 60 MILLIGRAM, BID (120 MG, QD)
     Route: 061
  12. OXYCODONE [Concomitant]
     Active Substance: OXYCODONE
     Dosage: 100 MILLIGRAM, BID (INCREASE IN THE OXYCODONE DOSE TO 2 X 100 MG)
     Route: 061
  13. OXYCODONE [Concomitant]
     Active Substance: OXYCODONE
     Indication: Abdominal pain
     Dosage: 80 MILLIGRAM, BID (160 MILLIGRAM, QD)
     Route: 061
  14. LACTULOSE [Concomitant]
     Active Substance: LACTULOSE
     Indication: Constipation
     Dosage: 15 MILLILITER, QD  (WAS ADDITIONALLY GIVEN LACTULOSE 3 X 15 ML)
  15. LACTULOSE [Concomitant]
     Active Substance: LACTULOSE
     Indication: Dyschezia

REACTIONS (9)
  - Thunderclap headache [Recovered/Resolved]
  - Disease recurrence [Recovered/Resolved]
  - Anticholinergic effect [Recovered/Resolved]
  - Reversible cerebral vasoconstriction syndrome [Recovered/Resolved]
  - Drug interaction [Recovered/Resolved]
  - Functional gastrointestinal disorder [Unknown]
  - Visual impairment [Recovered/Resolved]
  - Therapeutic product effect incomplete [Unknown]
  - Contraindicated product administered [Unknown]
